FAERS Safety Report 4786031-0 (Version None)
Quarter: 2005Q3

REPORT INFORMATION
  Report Type: 
  Country: None (occurrence: None)
  Receive Date: 20050930
  Receipt Date: 20050914
  Transmission Date: 20060218
  Serious: No
  Sender: FDA-Public Use
  Company Number: DSA_27104_2005

PATIENT
  Sex: Male

DRUGS (3)
  1. ATIVAN [Suspect]
     Dosage: VAR Q DAY PO
     Route: 048
  2. ATIVAN [Suspect]
     Dosage: VAR Q DAY PO
     Route: 048
     Dates: start: 20050901
  3. ATIVAN [Suspect]
     Dosage: VAR Q DAY PO
     Route: 048

REACTIONS (4)
  - DEREALISATION [None]
  - EMOTIONAL DISORDER [None]
  - HYPERHIDROSIS [None]
  - INDIFFERENCE [None]
